FAERS Safety Report 9349638 (Version 1)
Quarter: 2013Q2

REPORT INFORMATION
  Report Type: Spontaneous
  Country: US (occurrence: US)
  Receive Date: 20130614
  Receipt Date: 20130614
  Transmission Date: 20140414
  Serious: No
  Sender: FDA-Public Use
  Company Number: US-ASTRAZENECA-2013SE40599

PATIENT
  Age: 55 Year
  Sex: Female
  Weight: 86.2 kg

DRUGS (4)
  1. FASLODEX [Suspect]
     Indication: BREAST CANCER METASTATIC
     Dosage: 2-500 MG EVERY 15 DAYS FOR THREE CYCLES
     Route: 030
     Dates: start: 201304, end: 201305
  2. FASLODEX [Suspect]
     Indication: BREAST CANCER METASTATIC
     Dosage: 2-500 MG,MONTHLY
     Route: 030
     Dates: start: 201305
  3. CLONIDINE [Concomitant]
     Indication: HYPERTENSION
     Route: 048
  4. UNSPECIFIED DIURETIC [Concomitant]
     Indication: HYPERTENSION
     Route: 048

REACTIONS (1)
  - Lymphadenopathy [Not Recovered/Not Resolved]
